FAERS Safety Report 8398978-7 (Version None)
Quarter: 2012Q2

REPORT INFORMATION
  Report Type: 
  Country: None (occurrence: None)
  Receive Date: 20120323
  Receipt Date: 20110104
  Transmission Date: 20120825
  Serious: Yes (Hospitalization)
  Sender: FDA-Public Use
  Company Number: 163-21880-11010573

PATIENT
  Age: 76 Year
  Sex: Female
  Weight: 53.5244 kg

DRUGS (9)
  1. CARDIZEM [Concomitant]
  2. DIGOXIN [Concomitant]
  3. GLIPIZIDE [Concomitant]
  4. LASIX [Concomitant]
  5. VITAMIN D [Concomitant]
  6. COUMADIN [Concomitant]
  7. METFFORMIN HYDROCHLORIDE [Concomitant]
  8. REVLIMID [Suspect]
     Indication: MYELODYSPLASTIC SYNDROME
     Dosage: 5 MG, DAILY X 278 DAYS, PO
     Route: 048
     Dates: start: 20100311
  9. LANTUS [Concomitant]

REACTIONS (1)
  - URINARY TRACT INFECTION [None]
